FAERS Safety Report 25509682 (Version 2)
Quarter: 2025Q3

REPORT INFORMATION
  Report Type: Report from Study
  Country: EG (occurrence: EG)
  Receive Date: 20250703
  Receipt Date: 20250817
  Transmission Date: 20251021
  Serious: Yes (Other)
  Sender: BIOGEN
  Company Number: EG-BIOGEN-2025BI01315718

PATIENT
  Age: 24 Year
  Sex: Female
  Weight: 60 kg

DRUGS (5)
  1. AVONEX [Suspect]
     Active Substance: INTERFERON BETA-1A
     Indication: Multiple sclerosis
     Dosage: 30 MCG/0.5 ML IM EVERY WEEK
     Route: 050
     Dates: start: 202311, end: 2024
  2. AVONEX [Suspect]
     Active Substance: INTERFERON BETA-1A
     Dosage: 30 MCG/0.5 ML IM EVERY WEEK
     Route: 050
     Dates: start: 202409
  3. AVONEX [Suspect]
     Active Substance: INTERFERON BETA-1A
     Dosage: 30 MCG/0.5 ML IM EVERY WEEK
     Route: 050
     Dates: start: 202311, end: 20250701
  4. AVONEX [Suspect]
     Active Substance: INTERFERON BETA-1A
  5. PANADOL EXTRA [Concomitant]
     Active Substance: ACETAMINOPHEN\CAFFEINE
     Indication: Headache
     Route: 050

REACTIONS (4)
  - Multiple sclerosis [Recovered/Resolved]
  - Maternal exposure during pregnancy [Recovered/Resolved]
  - Lactation insufficiency [Not Recovered/Not Resolved]
  - Asthenia [Unknown]

NARRATIVE: CASE EVENT DATE: 20231218
